FAERS Safety Report 11077861 (Version 2)
Quarter: 2015Q3

REPORT INFORMATION
  Report Type: Spontaneous
  Country: US (occurrence: US)
  Receive Date: 20150430
  Receipt Date: 20150707
  Transmission Date: 20151125
  Serious: No
  Sender: FDA-Public Use
  Company Number: US-009507513-1504USA023371

PATIENT
  Age: 64 Year
  Sex: Female

DRUGS (3)
  1. TAXOL [Suspect]
     Active Substance: PACLITAXEL
  2. EMEND [Suspect]
     Active Substance: APREPITANT
     Indication: PROPHYLAXIS OF NAUSEA AND VOMITING
     Dosage: 3 ^BAGS^ PRE-MEDICATION THERAPY ALONG WITH BENADRYL
     Route: 042
  3. BENADRYL [Concomitant]
     Active Substance: DIPHENHYDRAMINE HYDROCHLORIDE

REACTIONS (4)
  - Dyspnoea [Recovering/Resolving]
  - Fear [Recovering/Resolving]
  - Syncope [Recovering/Resolving]
  - Anxiety [Recovering/Resolving]

NARRATIVE: CASE EVENT DATE: 20150422
